FAERS Safety Report 8266995-3 (Version None)
Quarter: 2012Q2

REPORT INFORMATION
  Report Type: 
  Country: None (occurrence: None)
  Receive Date: 20120409
  Receipt Date: 20120403
  Transmission Date: 20120825
  Serious: No
  Sender: FDA-Public Use
  Company Number: US-PFIZER INC-2012084500

PATIENT
  Sex: Female
  Weight: 54.422 kg

DRUGS (2)
  1. NEXIUM [Concomitant]
     Dosage: UNK
  2. ALAVERT [Suspect]
     Indication: HYPERSENSITIVITY
     Dosage: UNK, 1X/DAY
     Route: 048
     Dates: start: 20120301

REACTIONS (1)
  - DRUG EFFECT DECREASED [None]
